FAERS Safety Report 7803397-5 (Version None)
Quarter: 2011Q4

REPORT INFORMATION
  Report Type: 
  Country: None (occurrence: None)
  Receive Date: 20111007
  Receipt Date: 20100903
  Transmission Date: 20120403
  Serious: No
  Sender: FDA-Public Use
  Company Number: US-BAYER-201032811NA

PATIENT

DRUGS (2)
  1. LEVITRA [Suspect]
     Indication: ERECTILE DYSFUNCTION
     Route: 048
     Dates: start: 20090201, end: 20090201
  2. LEVITRA [Suspect]
     Route: 048
     Dates: start: 20100801

REACTIONS (1)
  - ADVERSE EVENT [None]
